FAERS Safety Report 17659403 (Version 1)
Quarter: 2020Q2

REPORT INFORMATION
  Report Type: Spontaneous
  Country: US (occurrence: US)
  Receive Date: 20200413
  Receipt Date: 20200413
  Transmission Date: 20200713
  Serious: No
  Sender: FDA-Public Use
  Company Number: US-BION-008088

PATIENT
  Age: 74 Year
  Sex: Male
  Weight: 90 kg

DRUGS (5)
  1. ALEVE CAPLETS UNKNOWN [Concomitant]
     Indication: PAIN
     Dosage: TAKE 3
     Route: 048
     Dates: start: 2008, end: 20190612
  2. CENTRUM [Concomitant]
     Active Substance: VITAMINS
  3. NORVASC [Concomitant]
     Active Substance: AMLODIPINE BESYLATE
  4. LOPRAZAR [Concomitant]
  5. ALEVE [Suspect]
     Active Substance: NAPROXEN SODIUM
     Indication: PAIN
     Dosage: DOSAGE: TOOK 3
     Route: 048
     Dates: start: 2018

REACTIONS (1)
  - Malaise [Recovered/Resolved]
